FAERS Safety Report 8817293 (Version 2)
Quarter: 2013Q2

REPORT INFORMATION
  Report Type: Report from Study
  Country: US (occurrence: US)
  Receive Date: 20121001
  Receipt Date: 20130402
  Transmission Date: 20140414
  Serious: Yes (Hospitalization)
  Sender: FDA-Public Use
  Company Number: US-ELI_LILLY_AND_COMPANY-US201209006242

PATIENT
  Age: 14 Year
  Sex: Male
  Weight: 59.5 kg

DRUGS (1)
  1. SOMATROPIN [Suspect]
     Indication: DWARFISM
     Dosage: 3.6 MG, QD
     Route: 058
     Dates: start: 20020620, end: 200511

REACTIONS (2)
  - Sleep apnoea syndrome [Recovered/Resolved]
  - Sleep apnoea syndrome [Recovered/Resolved]
